FAERS Safety Report 5786732-1 (Version None)
Quarter: 2008Q2

REPORT INFORMATION
  Report Type: 
  Country: None (occurrence: None)
  Receive Date: 20080619
  Receipt Date: 20080408
  Transmission Date: 20081010
  Serious: No
  Sender: FDA-Public Use
  Company Number: US-1165805

PATIENT
  Sex: Female

DRUGS (1)
  1. PATADAY SOLUTION [Suspect]
     Dosage: (OPHTHALMIC)
     Route: 047

REACTIONS (1)
  - DRUG INEFFECTIVE [None]
